FAERS Safety Report 9755522 (Version 1)
Quarter: 2013Q4

REPORT INFORMATION
  Report Type: Spontaneous
  Country: US (occurrence: US)
  Receive Date: 20131213
  Receipt Date: 20131213
  Transmission Date: 20140711
  Serious: No
  Sender: FDA-Public Use
  Company Number: US-GLAXOSMITHKLINE-A1019581A

PATIENT
  Age: 18 Year
  Sex: Female

DRUGS (3)
  1. WALGREENS NICOTINE TRANSDERMAL SYSTEM PATCH CLEAR, 21MG [Suspect]
     Indication: EX-TOBACCO USER
     Dates: start: 20130410, end: 20130410
  2. UNSPECIFIED MEDICATION [Concomitant]
     Indication: DEPRESSION
  3. UNSPECIFIED MEDICATION [Concomitant]

REACTIONS (3)
  - Tremor [Not Recovered/Not Resolved]
  - Disturbance in attention [Not Recovered/Not Resolved]
  - Application site pruritus [Not Recovered/Not Resolved]
